FAERS Safety Report 9333441 (Version 2)
Quarter: 2013Q3

REPORT INFORMATION
  Report Type: Spontaneous
  Country: US (occurrence: US)
  Receive Date: 20130606
  Receipt Date: 20130830
  Transmission Date: 20140515
  Serious: Yes (Hospitalization)
  Sender: FDA-Public Use
  Company Number: US-B.I. PHARMACEUTICALS,INC./RIDGEFIELD-2013-BI-15775BP

PATIENT
  Age: 72 Year
  Sex: Male
  Weight: 65.32 kg

DRUGS (5)
  1. PRADAXA [Suspect]
     Indication: ATRIAL FIBRILLATION
     Dosage: 300 MG
     Route: 048
     Dates: start: 20110428, end: 20120229
  2. CARVEDILOL [Concomitant]
     Dosage: 25 MG
     Route: 048
  3. ALDACTONE [Concomitant]
     Dosage: 25 MG
     Route: 048
  4. SIMVASTATIN [Concomitant]
     Dosage: 40 MG
     Route: 048
  5. ENALAPRIL [Concomitant]
     Dosage: 5 MG
     Route: 048

REACTIONS (6)
  - Rectal haemorrhage [Recovered/Resolved]
  - Haemorrhagic anaemia [Unknown]
  - Renal failure acute [Unknown]
  - Hypotension [Recovered/Resolved]
  - Coagulopathy [Unknown]
  - Electrolyte imbalance [Unknown]
